FAERS Safety Report 15648395 (Version 13)
Quarter: 2019Q4

REPORT INFORMATION
  Report Type: Spontaneous
  Country: US (occurrence: US)
  Receive Date: 20181122
  Receipt Date: 20191011
  Transmission Date: 20200122
  Serious: No
  Sender: FDA-Public Use
  Company Number: US-PFIZER INC-2018260333

PATIENT
  Age: 33 Year
  Sex: Female
  Weight: 117 kg

DRUGS (7)
  1. LYRICA CR [Suspect]
     Active Substance: PREGABALIN
     Indication: NEURITIS
     Dosage: UNK, 3X/DAY
  2. LYRICA CR [Suspect]
     Active Substance: PREGABALIN
     Indication: MULTIPLE SCLEROSIS
     Dosage: 330 MG, 1X/DAY (EVERY NIGHT BEFORE BED)
     Route: 048
     Dates: start: 2018
  3. LYRICA CR [Suspect]
     Active Substance: PREGABALIN
     Indication: NERVE INJURY
     Dosage: 165 MG, DAILY
     Route: 048
  4. LYRICA CR [Suspect]
     Active Substance: PREGABALIN
     Indication: NEURALGIA
     Dosage: 495 MG, DAILY (165 MG, 3 TABLET  DAILY)
     Route: 048
  5. LYRICA CR [Suspect]
     Active Substance: PREGABALIN
     Indication: BURNING SENSATION
  6. LYRICA CR [Suspect]
     Active Substance: PREGABALIN
     Indication: NEUROPATHY PERIPHERAL
     Dosage: 145 MG, UNK
     Route: 048
  7. REBIF [Concomitant]
     Active Substance: INTERFERON BETA-1A
     Dosage: UNK

REACTIONS (9)
  - Pain [Unknown]
  - Drug ineffective [Unknown]
  - Crying [Unknown]
  - Memory impairment [Unknown]
  - Gait disturbance [Unknown]
  - Pain in extremity [Unknown]
  - Insomnia [Unknown]
  - Erythema [Unknown]
  - Burning sensation [Unknown]

NARRATIVE: CASE EVENT DATE: 2018
